FAERS Safety Report 8311221 (Version 3)
Quarter: 2012Q4

REPORT INFORMATION
  Report Type: 
  Country: JP (occurrence: JP)
  Receive Date: 20111227
  Receipt Date: 20120830
  Transmission Date: 20130627
  Serious: Yes (Hospitalization)
  Sender: FDA-Public Use
  Company Number: JP-JNJFOC-20111210621

PATIENT
  Age: 78 Year
  Sex: Male

DRUGS (6)
  1. TRAMAL [Suspect]
     Indication: PRODUCT USED FOR UNKNOWN INDICATION
     Route: 048
     Dates: start: 20111116, end: 20111120
  2. DEPAS [Concomitant]
     Indication: PRODUCT USED FOR UNKNOWN INDICATION
     Route: 065
  3. ZOMETA [Concomitant]
     Route: 065
     Dates: start: 20111115
  4. DUROTEP [Concomitant]
     Route: 065
     Dates: start: 20111109
  5. VOLTAREN [Concomitant]
     Route: 065
     Dates: start: 20110228
  6. CALONAL [Concomitant]
     Route: 065
     Dates: start: 20111128

REACTIONS (1)
  - Restlessness [Not Recovered/Not Resolved]
